FAERS Safety Report 15553193 (Version 1)
Quarter: 2018Q4

REPORT INFORMATION
  Report Type: Spontaneous
  Country: FR (occurrence: FR)
  Receive Date: 20181026
  Receipt Date: 20181026
  Transmission Date: 20190205
  Serious: Yes (Hospitalization, Other)
  Sender: FDA-Public Use
  Company Number: FR-AUROBINDO-AUR-APL-2018-051974

PATIENT
  Age: 28 Year
  Sex: Female

DRUGS (3)
  1. CEFPODOXIME [Suspect]
     Active Substance: CEFPODOXIME
     Indication: TONSILLITIS
     Dosage: UNK
     Route: 048
     Dates: start: 201808, end: 201808
  2. TOPLEXIL                           /00111401/ [Suspect]
     Active Substance: ACETAMINOPHEN\GUAIFENESIN\OXOMEMAZINE\SODIUM BENZOATE
     Indication: TONSILLITIS
     Dosage: UNK
     Route: 048
     Dates: start: 201808, end: 201808
  3. MAXILASE [Suspect]
     Active Substance: PANCRELIPASE
     Indication: TONSILLITIS
     Dosage: UNK
     Route: 048
     Dates: start: 201808, end: 201808

REACTIONS (4)
  - Pancytopenia [Not Recovered/Not Resolved]
  - Neutropenia [Not Recovered/Not Resolved]
  - Thrombocytopenia [Not Recovered/Not Resolved]
  - Anaemia [Recovered/Resolved]

NARRATIVE: CASE EVENT DATE: 20180825
